FAERS Safety Report 13989432 (Version 1)
Quarter: 2017Q3

REPORT INFORMATION
  Report Type: Spontaneous
  Country: US (occurrence: US)
  Receive Date: 20170920
  Receipt Date: 20170920
  Transmission Date: 20171128
  Serious: No
  Sender: FDA-Public Use
  Company Number: PHEH2017US030278

PATIENT
  Sex: Female

DRUGS (1)
  1. PROMACTA [Suspect]
     Active Substance: ELTROMBOPAG OLAMINE
     Indication: ANTIPHOSPHOLIPID ANTIBODIES
     Dosage: 50 MG, QD
     Route: 048
     Dates: start: 20170412

REACTIONS (1)
  - Dizziness [Unknown]
